FAERS Safety Report 15209160 (Version 1)
Quarter: 2018Q3

REPORT INFORMATION
  Report Type: Spontaneous
  Country: US (occurrence: US)
  Receive Date: 20180629
  Receipt Date: 20180629
  Transmission Date: 20181010
  Serious: Yes (Hospitalization)
  Sender: FDA-Public Use
  Company Number: None

PATIENT
  Age: 66 Year
  Sex: Male
  Weight: 56 kg

DRUGS (1)
  1. ALPRAZOLAM. [Suspect]
     Active Substance: ALPRAZOLAM
     Dates: start: 20180209, end: 20180315

REACTIONS (6)
  - Dyspnoea exertional [None]
  - Somnolence [None]
  - Therapy cessation [None]
  - Respiratory failure [None]
  - Dyspnoea [None]
  - Mental status changes [None]

NARRATIVE: CASE EVENT DATE: 20180314
